APPROVED DRUG PRODUCT: LABETALOL HYDROCHLORIDE
Active Ingredient: LABETALOL HYDROCHLORIDE
Strength: 200MG
Dosage Form/Route: TABLET;ORAL
Application: A074787 | Product #002 | TE Code: AB
Applicant: HERITAGE PHARMA LABS INC
Approved: Aug 3, 1998 | RLD: No | RS: No | Type: RX